FAERS Safety Report 5718986-1 (Version None)
Quarter: 2008Q2

REPORT INFORMATION
  Report Type: 
  Country: None (occurrence: None)
  Receive Date: 20080425
  Receipt Date: 20080417
  Transmission Date: 20081010
  Serious: Yes (Other)
  Sender: FDA-Public Use
  Company Number: PHBS2008US04200

PATIENT
  Age: 67 Year
  Sex: Male

DRUGS (6)
  1. PAMIDRONATE DISODIUM [Suspect]
     Indication: MULTIPLE MYELOMA
  2. ZOLEDRONIC ACID [Suspect]
     Indication: MULTIPLE MYELOMA
  3. LENALIDOMIDE [Concomitant]
     Indication: MULTIPLE MYELOMA
  4. VELCADE [Concomitant]
     Indication: MULTIPLE MYELOMA
  5. THALIDOMIDE [Concomitant]
  6. DEXAMETHASONE TAB [Concomitant]

REACTIONS (1)
  - OSTEONECROSIS [None]
